FAERS Safety Report 7442099-4 (Version None)
Quarter: 2011Q2

REPORT INFORMATION
  Report Type: 
  Country: None (occurrence: None)
  Receive Date: 20110420
  Receipt Date: 20110407
  Transmission Date: 20111010
  Serious: Yes (Hospitalization, Other)
  Sender: FDA-Public Use
  Company Number: 027110

PATIENT
  Sex: Male

DRUGS (3)
  1. VALPROIC ACID [Suspect]
     Indication: EPILEPSY
     Dosage: (2500 MG)
  2. LACOSAMIDE [Suspect]
     Indication: EPILEPSY
     Dosage: (200 MG)
  3. KEPPRA [Suspect]
     Indication: EPILEPSY
     Dosage: (2000 MG)

REACTIONS (2)
  - INTERVERTEBRAL DISC DISORDER [None]
  - ACNE [None]
